FAERS Safety Report 21329603 (Version 23)
Quarter: 2025Q1

REPORT INFORMATION
  Report Type: Report from Study
  Country: CA (occurrence: CA)
  Receive Date: 20220913
  Receipt Date: 20250131
  Transmission Date: 20250409
  Serious: Yes (Other)
  Sender: ROCHE
  Company Number: CA-ROCHE-1831885

PATIENT
  Age: 58 Year
  Sex: Female
  Weight: 70 kg

DRUGS (122)
  1. ACTEMRA [Suspect]
     Active Substance: TOCILIZUMAB
     Indication: Rheumatoid arthritis
     Route: 040
     Dates: start: 20121206, end: 20131107
  2. ACTEMRA [Suspect]
     Active Substance: TOCILIZUMAB
     Route: 040
     Dates: start: 20131205, end: 20140522
  3. ACTEMRA [Suspect]
     Active Substance: TOCILIZUMAB
     Route: 040
     Dates: start: 20140619, end: 20140717
  4. ACTEMRA [Suspect]
     Active Substance: TOCILIZUMAB
     Route: 040
     Dates: start: 20140814, end: 20180705
  5. ACTEMRA [Suspect]
     Active Substance: TOCILIZUMAB
     Route: 040
     Dates: start: 20180807, end: 20190716
  6. ACTEMRA [Suspect]
     Active Substance: TOCILIZUMAB
     Route: 040
     Dates: start: 20190812, end: 20191202
  7. ACTEMRA [Suspect]
     Active Substance: TOCILIZUMAB
     Dosage: ONGOING
     Route: 040
     Dates: start: 20191230, end: 20201201
  8. ACTEMRA [Suspect]
     Active Substance: TOCILIZUMAB
     Dosage: ONGOING
     Route: 040
     Dates: start: 20201229
  9. ACTEMRA [Suspect]
     Active Substance: TOCILIZUMAB
     Route: 040
     Dates: start: 20120816, end: 20121108
  10. ACTEMRA [Suspect]
     Active Substance: TOCILIZUMAB
     Dosage: INFUSION #66
     Route: 040
     Dates: start: 20171013
  11. ACTEMRA [Suspect]
     Active Substance: TOCILIZUMAB
     Route: 040
     Dates: start: 20180906, end: 20190716
  12. ACTEMRA [Suspect]
     Active Substance: TOCILIZUMAB
     Route: 040
     Dates: start: 20190812, end: 20191202
  13. ACTEMRA [Suspect]
     Active Substance: TOCILIZUMAB
     Route: 040
     Dates: start: 20191230, end: 20201201
  14. ACTEMRA [Suspect]
     Active Substance: TOCILIZUMAB
     Route: 040
  15. ACTEMRA [Suspect]
     Active Substance: TOCILIZUMAB
     Route: 040
  16. ACTEMRA [Suspect]
     Active Substance: TOCILIZUMAB
     Route: 040
  17. ACTEMRA [Suspect]
     Active Substance: TOCILIZUMAB
     Route: 040
  18. ACTEMRA [Suspect]
     Active Substance: TOCILIZUMAB
     Route: 040
  19. ACTEMRA [Suspect]
     Active Substance: TOCILIZUMAB
     Route: 040
  20. ACTEMRA [Suspect]
     Active Substance: TOCILIZUMAB
     Route: 040
  21. ACTEMRA [Suspect]
     Active Substance: TOCILIZUMAB
     Route: 040
  22. ACTEMRA [Suspect]
     Active Substance: TOCILIZUMAB
     Route: 040
  23. ACTEMRA [Suspect]
     Active Substance: TOCILIZUMAB
     Route: 040
  24. ACTEMRA [Suspect]
     Active Substance: TOCILIZUMAB
     Route: 040
  25. ACTEMRA [Suspect]
     Active Substance: TOCILIZUMAB
     Route: 040
  26. ACTEMRA [Suspect]
     Active Substance: TOCILIZUMAB
     Route: 040
  27. ACTEMRA [Suspect]
     Active Substance: TOCILIZUMAB
     Route: 040
  28. ACTEMRA [Suspect]
     Active Substance: TOCILIZUMAB
     Route: 040
  29. ACTEMRA [Suspect]
     Active Substance: TOCILIZUMAB
     Route: 040
  30. ACTEMRA [Suspect]
     Active Substance: TOCILIZUMAB
     Route: 040
  31. ACTEMRA [Suspect]
     Active Substance: TOCILIZUMAB
     Route: 040
  32. ACTEMRA [Suspect]
     Active Substance: TOCILIZUMAB
     Route: 040
  33. ACTEMRA [Suspect]
     Active Substance: TOCILIZUMAB
     Route: 040
  34. ACTEMRA [Suspect]
     Active Substance: TOCILIZUMAB
     Route: 040
  35. ACTEMRA [Suspect]
     Active Substance: TOCILIZUMAB
     Route: 040
  36. ACTEMRA [Suspect]
     Active Substance: TOCILIZUMAB
     Route: 040
  37. ACTEMRA [Suspect]
     Active Substance: TOCILIZUMAB
     Route: 040
  38. ACTEMRA [Suspect]
     Active Substance: TOCILIZUMAB
     Route: 040
  39. ACTEMRA [Suspect]
     Active Substance: TOCILIZUMAB
     Route: 040
  40. ACTEMRA [Suspect]
     Active Substance: TOCILIZUMAB
     Route: 040
  41. ACTEMRA [Suspect]
     Active Substance: TOCILIZUMAB
     Route: 040
  42. ACTEMRA [Suspect]
     Active Substance: TOCILIZUMAB
     Route: 040
  43. ACTEMRA [Suspect]
     Active Substance: TOCILIZUMAB
     Route: 040
  44. ACTEMRA [Suspect]
     Active Substance: TOCILIZUMAB
     Route: 040
  45. ACTEMRA [Suspect]
     Active Substance: TOCILIZUMAB
     Route: 040
  46. ACTEMRA [Suspect]
     Active Substance: TOCILIZUMAB
     Route: 040
  47. ACTEMRA [Suspect]
     Active Substance: TOCILIZUMAB
     Route: 040
  48. ACTEMRA [Suspect]
     Active Substance: TOCILIZUMAB
     Route: 040
  49. ACTEMRA [Suspect]
     Active Substance: TOCILIZUMAB
     Route: 040
  50. ACTEMRA [Suspect]
     Active Substance: TOCILIZUMAB
     Route: 040
  51. ACTEMRA [Suspect]
     Active Substance: TOCILIZUMAB
     Route: 040
  52. ACTEMRA [Suspect]
     Active Substance: TOCILIZUMAB
     Route: 040
  53. ACTEMRA [Suspect]
     Active Substance: TOCILIZUMAB
     Route: 040
  54. ACTEMRA [Suspect]
     Active Substance: TOCILIZUMAB
     Route: 040
  55. ACTEMRA [Suspect]
     Active Substance: TOCILIZUMAB
     Route: 040
  56. ACTEMRA [Suspect]
     Active Substance: TOCILIZUMAB
     Route: 040
  57. ACTEMRA [Suspect]
     Active Substance: TOCILIZUMAB
     Route: 040
  58. ACTEMRA [Suspect]
     Active Substance: TOCILIZUMAB
     Route: 040
  59. ACTEMRA [Suspect]
     Active Substance: TOCILIZUMAB
     Route: 040
  60. ACTEMRA [Suspect]
     Active Substance: TOCILIZUMAB
     Route: 040
  61. ACTEMRA [Suspect]
     Active Substance: TOCILIZUMAB
     Route: 040
  62. ACTEMRA [Suspect]
     Active Substance: TOCILIZUMAB
     Route: 040
  63. ACTEMRA [Suspect]
     Active Substance: TOCILIZUMAB
     Route: 040
  64. ACTEMRA [Suspect]
     Active Substance: TOCILIZUMAB
     Route: 040
  65. ACTEMRA [Suspect]
     Active Substance: TOCILIZUMAB
     Route: 040
  66. ACTEMRA [Suspect]
     Active Substance: TOCILIZUMAB
     Route: 040
  67. ACTEMRA [Suspect]
     Active Substance: TOCILIZUMAB
     Route: 040
  68. ACTEMRA [Suspect]
     Active Substance: TOCILIZUMAB
     Route: 040
  69. ACTEMRA [Suspect]
     Active Substance: TOCILIZUMAB
     Route: 040
  70. ACTEMRA [Suspect]
     Active Substance: TOCILIZUMAB
     Route: 040
  71. ACTEMRA [Suspect]
     Active Substance: TOCILIZUMAB
     Route: 040
  72. ACTEMRA [Suspect]
     Active Substance: TOCILIZUMAB
     Route: 040
  73. ACTEMRA [Suspect]
     Active Substance: TOCILIZUMAB
     Route: 040
  74. ACTEMRA [Suspect]
     Active Substance: TOCILIZUMAB
     Route: 040
  75. ACTEMRA [Suspect]
     Active Substance: TOCILIZUMAB
     Route: 040
  76. ACTEMRA [Suspect]
     Active Substance: TOCILIZUMAB
     Route: 040
  77. ACTEMRA [Suspect]
     Active Substance: TOCILIZUMAB
     Route: 040
  78. ACTEMRA [Suspect]
     Active Substance: TOCILIZUMAB
     Route: 040
  79. ACTEMRA [Suspect]
     Active Substance: TOCILIZUMAB
     Route: 040
  80. ACTEMRA [Suspect]
     Active Substance: TOCILIZUMAB
     Route: 040
  81. ACTEMRA [Suspect]
     Active Substance: TOCILIZUMAB
     Route: 040
  82. ACTEMRA [Suspect]
     Active Substance: TOCILIZUMAB
     Route: 040
  83. ACTEMRA [Suspect]
     Active Substance: TOCILIZUMAB
     Route: 040
  84. ACTEMRA [Suspect]
     Active Substance: TOCILIZUMAB
     Route: 040
  85. ACTEMRA [Suspect]
     Active Substance: TOCILIZUMAB
     Route: 040
  86. ACTEMRA [Suspect]
     Active Substance: TOCILIZUMAB
     Route: 040
  87. ACTEMRA [Suspect]
     Active Substance: TOCILIZUMAB
     Route: 040
  88. ACTEMRA [Suspect]
     Active Substance: TOCILIZUMAB
     Route: 040
  89. ACTEMRA [Suspect]
     Active Substance: TOCILIZUMAB
     Route: 040
  90. ACTEMRA [Suspect]
     Active Substance: TOCILIZUMAB
     Route: 040
  91. ACTEMRA [Suspect]
     Active Substance: TOCILIZUMAB
     Route: 040
  92. ACTEMRA [Suspect]
     Active Substance: TOCILIZUMAB
     Route: 040
  93. ACTEMRA [Suspect]
     Active Substance: TOCILIZUMAB
     Route: 040
  94. ACTEMRA [Suspect]
     Active Substance: TOCILIZUMAB
     Route: 040
  95. ACTEMRA [Suspect]
     Active Substance: TOCILIZUMAB
     Route: 040
  96. ACTEMRA [Suspect]
     Active Substance: TOCILIZUMAB
     Route: 040
  97. ACTEMRA [Suspect]
     Active Substance: TOCILIZUMAB
     Route: 040
  98. ACTEMRA [Suspect]
     Active Substance: TOCILIZUMAB
     Route: 040
  99. ACTEMRA [Suspect]
     Active Substance: TOCILIZUMAB
     Route: 040
  100. ACTEMRA [Suspect]
     Active Substance: TOCILIZUMAB
     Route: 040
  101. ACTEMRA [Suspect]
     Active Substance: TOCILIZUMAB
     Route: 040
  102. ACTEMRA [Suspect]
     Active Substance: TOCILIZUMAB
     Route: 040
  103. ACTEMRA [Suspect]
     Active Substance: TOCILIZUMAB
     Route: 040
  104. ACTEMRA [Suspect]
     Active Substance: TOCILIZUMAB
     Route: 040
  105. ACTEMRA [Suspect]
     Active Substance: TOCILIZUMAB
     Route: 040
  106. ACTEMRA [Suspect]
     Active Substance: TOCILIZUMAB
     Route: 040
  107. ACTEMRA [Suspect]
     Active Substance: TOCILIZUMAB
     Route: 040
  108. ACTEMRA [Suspect]
     Active Substance: TOCILIZUMAB
     Route: 040
  109. ACTEMRA [Suspect]
     Active Substance: TOCILIZUMAB
     Route: 040
  110. ACTEMRA [Suspect]
     Active Substance: TOCILIZUMAB
     Route: 040
  111. ACTEMRA [Suspect]
     Active Substance: TOCILIZUMAB
     Route: 040
  112. MORPHINE SULFATE [Suspect]
     Active Substance: MORPHINE SULFATE
     Indication: Product used for unknown indication
     Route: 065
  113. MACROBID [Suspect]
     Active Substance: NITROFURANTOIN\NITROFURANTOIN MONOHYDRATE
     Indication: Product used for unknown indication
     Route: 065
  114. CORTISONE [Concomitant]
     Active Substance: CORTISONE
     Indication: Osteoarthritis
     Route: 014
  115. CRESTOR [Concomitant]
     Active Substance: ROSUVASTATIN CALCIUM
     Dates: start: 20131125
  116. DOMPERIDONE [Concomitant]
     Active Substance: DOMPERIDONE
     Route: 065
     Dates: start: 20130509
  117. FOLIC ACID [Concomitant]
     Active Substance: FOLIC ACID
     Route: 065
  118. PLAQUENIL [Concomitant]
     Active Substance: HYDROXYCHLOROQUINE SULFATE
  119. LOSEC [Concomitant]
     Active Substance: OMEPRAZOLE
  120. LEVOLEUCOVORIN CALCIUM [Concomitant]
     Active Substance: LEVOLEUCOVORIN CALCIUM
  121. NAPROXEN [Concomitant]
     Active Substance: NAPROXEN
  122. MOTILIUM [Concomitant]
     Active Substance: DOMPERIDONE

REACTIONS (54)
  - Rheumatoid arthritis [Unknown]
  - Nephrolithiasis [Not Recovered/Not Resolved]
  - Urinary tract infection bacterial [Unknown]
  - Heart valve incompetence [Unknown]
  - Herpes zoster [Recovered/Resolved]
  - Cardiac failure [Recovering/Resolving]
  - Pulmonary mass [Unknown]
  - Sleep apnoea syndrome [Unknown]
  - Osteoarthritis [Not Recovered/Not Resolved]
  - Central nervous system neoplasm [Unknown]
  - Pelvic fracture [Recovering/Resolving]
  - Nephrolithiasis [Unknown]
  - Nausea [Unknown]
  - Blood pressure diastolic abnormal [Unknown]
  - Blood pressure systolic increased [Unknown]
  - Ear infection [Recovered/Resolved]
  - Abdominal distension [Unknown]
  - Faeces discoloured [Unknown]
  - Skin laceration [Recovering/Resolving]
  - Body temperature decreased [Unknown]
  - Arthralgia [Recovered/Resolved]
  - Epicondylitis [Unknown]
  - Oxygen saturation decreased [Unknown]
  - Heart rate decreased [Unknown]
  - Headache [Unknown]
  - Amnesia [Unknown]
  - Blood pressure diastolic decreased [Unknown]
  - Blood pressure systolic abnormal [Unknown]
  - Pain in extremity [Not Recovered/Not Resolved]
  - Blood pressure fluctuation [Unknown]
  - Hypotension [Unknown]
  - Fall [Unknown]
  - Rib fracture [Unknown]
  - Osteitis [Unknown]
  - COVID-19 [Recovered/Resolved]
  - Urinary tract infection [Unknown]
  - Dyspnoea [Unknown]
  - Respiratory tract oedema [Unknown]
  - Rash [Unknown]
  - Acne [Unknown]
  - Weight decreased [Unknown]
  - Health assessment questionnaire score increased [Recovering/Resolving]
  - Vomiting [Unknown]
  - Constipation [Unknown]
  - Neck pain [Unknown]
  - Macrocytosis [Unknown]
  - Viral skin infection [Unknown]
  - Off label use [Unknown]
  - Abdominal pain [Unknown]
  - Back pain [Unknown]
  - Abdominal pain upper [Recovered/Resolved]
  - Drug hypersensitivity [Unknown]
  - Weight increased [Unknown]
  - Cataract [Unknown]

NARRATIVE: CASE EVENT DATE: 20131017
